FAERS Safety Report 23348577 (Version 2)
Quarter: 2024Q1

REPORT INFORMATION
  Report Type: Report from Study
  Country: US (occurrence: US)
  Receive Date: 20231228
  Receipt Date: 20240314
  Transmission Date: 20240410
  Serious: No
  Sender: FDA-Public Use
  Company Number: US-SA-SAC20231220000743

PATIENT
  Age: 45 Year
  Sex: Male
  Weight: 104 kg

DRUGS (7)
  1. DUPILUMAB [Suspect]
     Active Substance: DUPILUMAB
     Indication: Nasal polyps
     Dosage: 300 MG, QOW
     Route: 058
     Dates: start: 20230615
  2. SYMBICORT [Concomitant]
     Active Substance: BUDESONIDE\FORMOTEROL FUMARATE DIHYDRATE
     Dosage: 160-4.5MCG HFA AER AD
  3. ATENOLOL [Concomitant]
     Active Substance: ATENOLOL
     Dosage: UNK
  4. XHANCE [Concomitant]
     Active Substance: FLUTICASONE PROPIONATE
     Dosage: 93 MCG AER BR.ACT
  5. VITAMIN C [Concomitant]
     Active Substance: ASCORBIC ACID
     Dosage: UNK
  6. ZYRTEC [Concomitant]
     Active Substance: CETIRIZINE HYDROCHLORIDE
     Dosage: UNK
  7. VITAMIN D3 [Concomitant]
     Active Substance: CHOLECALCIFEROL
     Dosage: UNK

REACTIONS (6)
  - Cough [Unknown]
  - Respiratory tract congestion [Unknown]
  - Oropharyngeal discomfort [Unknown]
  - Myalgia [Unknown]
  - Nasopharyngitis [Unknown]
  - Oropharyngeal pain [Unknown]

NARRATIVE: CASE EVENT DATE: 20230101
